FAERS Safety Report 19188722 (Version 1)
Quarter: 2021Q2

REPORT INFORMATION
  Report Type: Spontaneous
  Country: US (occurrence: US)
  Receive Date: 20210427
  Receipt Date: 20210427
  Transmission Date: 20210717
  Serious: Yes (Hospitalization)
  Sender: FDA-Public Use
  Company Number: None

PATIENT
  Age: 67 Year
  Sex: Male

DRUGS (1)
  1. SUTENT [Suspect]
     Active Substance: SUNITINIB MALATE
     Indication: PRODUCT USED FOR UNKNOWN INDICATION
     Route: 048
     Dates: start: 20210317

REACTIONS (4)
  - Lymphadenopathy [None]
  - Metastases to adrenals [None]
  - Therapy interrupted [None]
  - Gastrointestinal disorder [None]

NARRATIVE: CASE EVENT DATE: 20210325
